FAERS Safety Report 10949176 (Version 1)
Quarter: 2015Q1

REPORT INFORMATION
  Report Type: Report from Study
  Country: DE (occurrence: DE)
  Receive Date: 20150324
  Receipt Date: 20150324
  Transmission Date: 20150721
  Serious: Yes (Hospitalization)
  Sender: FDA-Public Use
  Company Number: DE-ABBVIE-15P-062-1363523-00

PATIENT
  Sex: Male
  Weight: 72 kg

DRUGS (4)
  1. DUODOPA [Suspect]
     Active Substance: CARBIDOPA\LEVODOPA
     Dosage: SEE NARRATIVE
     Route: 050
     Dates: start: 201411
  2. CARBIDOPA/LEVODOPA [Concomitant]
     Active Substance: CARBIDOPA\LEVODOPA
     Indication: PRODUCT USED FOR UNKNOWN INDICATION
     Dosage: AT 10:30PM
  3. DUODOPA [Suspect]
     Active Substance: CARBIDOPA\LEVODOPA
     Indication: PARKINSON^S DISEASE
     Dosage: MD 9.2ML?CRD 4.8 ML/H?ED 1.0 ML
     Route: 050
     Dates: start: 20120314, end: 201411
  4. DUODOPA [Suspect]
     Active Substance: CARBIDOPA\LEVODOPA
     Dosage: MD 9.2ML?CRD 4.1ML/H?ED 1.0ML
     Route: 050
     Dates: start: 201412

REACTIONS (17)
  - Cognitive disorder [Unknown]
  - Hospitalisation [Unknown]
  - Pseudomonas infection [Unknown]
  - Jealous delusion [Recovering/Resolving]
  - Hyperhidrosis [Unknown]
  - Neuropsychiatric syndrome [Unknown]
  - Hallucination [Unknown]
  - Disorientation [Unknown]
  - Hypersexuality [Unknown]
  - Freezing phenomenon [Unknown]
  - Dyskinesia [Recovering/Resolving]
  - Echopraxia [Unknown]
  - Tachycardia [Unknown]
  - Weight decreased [Unknown]
  - Dystonia [Unknown]
  - Fall [Unknown]
  - Seborrhoea [Unknown]

NARRATIVE: CASE EVENT DATE: 2014
